FAERS Safety Report 25777322 (Version 1)
Quarter: 2025Q3

REPORT INFORMATION
  Report Type: Report from Study
  Country: US (occurrence: US)
  Receive Date: 20250909
  Receipt Date: 20250909
  Transmission Date: 20251020
  Serious: Yes (Hospitalization, Other)
  Sender: GILEAD
  Company Number: US-GILEAD-2025-0727276

PATIENT
  Age: 81 Year
  Sex: Female

DRUGS (1)
  1. AMBRISENTAN [Suspect]
     Active Substance: AMBRISENTAN
     Indication: Pulmonary hypertension
     Dosage: LETAIRIS 5MG ORALLY DAILY
     Route: 048
     Dates: start: 20250401

REACTIONS (2)
  - Cardiac pacemaker insertion [Unknown]
  - Limb operation [Unknown]

NARRATIVE: CASE EVENT DATE: 20250827
